FAERS Safety Report 5955809-X (Version None)
Quarter: 2008Q4

REPORT INFORMATION
  Report Type: 
  Country: None (occurrence: None)
  Receive Date: 20081117
  Receipt Date: 20081106
  Transmission Date: 20090506
  Serious: Yes (Hospitalization, Other)
  Sender: FDA-Public Use
  Company Number: JP-PFIZER INC-2008081222

PATIENT
  Sex: Female
  Weight: 60 kg

DRUGS (11)
  1. HALCION [Suspect]
     Indication: INSOMNIA
     Dosage: DAILY DOSE:.5MG
     Route: 048
     Dates: start: 20061210, end: 20070122
  2. MEILAX [Suspect]
     Indication: RESTLESSNESS
     Dosage: DAILY DOSE:2MG
     Route: 048
     Dates: start: 20070119, end: 20070122
  3. MEILAX [Suspect]
     Indication: INSOMNIA
  4. ROHYPNOL [Suspect]
     Indication: INSOMNIA
     Dosage: DAILY DOSE:2MG
     Route: 048
     Dates: start: 20070119, end: 20070122
  5. AMOBAN [Suspect]
     Indication: INSOMNIA
     Dosage: DAILY DOSE:10MG
     Route: 048
     Dates: start: 20070119, end: 20070122
  6. DEPAKENE [Suspect]
     Indication: RESTLESSNESS
     Dosage: DAILY DOSE:400MG
     Dates: start: 20070119, end: 20070122
  7. DEPAKENE [Suspect]
     Indication: INSOMNIA
  8. BUFFERIN [Concomitant]
     Indication: HYPERTENSION
  9. BUFFERIN [Concomitant]
     Indication: CEREBRAL INFARCTION
  10. CONIEL [Concomitant]
     Indication: HYPERTENSION
  11. MAGNESIUM OXIDE [Concomitant]

REACTIONS (1)
  - DELIRIUM [None]
